FAERS Safety Report 8833112 (Version 1)
Quarter: 2012Q4

REPORT INFORMATION
  Report Type: 
  Country: FR (occurrence: FR)
  Receive Date: 20121010
  Receipt Date: 20121010
  Transmission Date: 20130627
  Serious: Yes (Other)
  Sender: FDA-Public Use
  Company Number: FR-BAYER-2012-104907

PATIENT
  Age: 7 Year
  Sex: Male

DRUGS (7)
  1. NIFEDIPINE [Suspect]
     Indication: HYPERTENSION
  2. LABETALOL [Suspect]
     Indication: HYPERTENSION
  3. MINOXIDIL [Suspect]
     Indication: HYPERTENSION
  4. SELECTIVE IMMUNOSUPPRESSIVE AGENTS [Concomitant]
     Indication: HAEMOLYTIC URAEMIC SYNDROME
     Dosage: 600 mg, UNK
  5. SELECTIVE IMMUNOSUPPRESSIVE AGENTS [Concomitant]
     Indication: HAEMOLYTIC URAEMIC SYNDROME
     Dosage: 600 mg, OW
  6. SELECTIVE IMMUNOSUPPRESSIVE AGENTS [Concomitant]
     Indication: HAEMOLYTIC URAEMIC SYNDROME
     Dosage: 600 mg, Q2WK
  7. SELECTIVE IMMUNOSUPPRESSIVE AGENTS [Concomitant]
     Indication: HAEMOLYTIC URAEMIC SYNDROME
     Dosage: 900 mg, Q2WK

REACTIONS (1)
  - Hypertension [Recovered/Resolved]
